FAERS Safety Report 6132524-3 (Version None)
Quarter: 2009Q1

REPORT INFORMATION
  Report Type: 
  Country: None (occurrence: None)
  Receive Date: 20090325
  Receipt Date: 20090311
  Transmission Date: 20090719
  Serious: Yes (Hospitalization)
  Sender: FDA-Public Use
  Company Number: JP-GENENTECH-271993

PATIENT
  Sex: Female
  Weight: 49 kg

DRUGS (7)
  1. AVASTIN [Suspect]
     Indication: COLORECTAL CANCER METASTATIC
     Dosage: 245 MG, Q2W
     Route: 042
     Dates: start: 20080902, end: 20081105
  2. LOXONIN [Suspect]
     Indication: WOUND COMPLICATION
     Dosage: 60 MG, BID
     Route: 048
     Dates: start: 20080801, end: 20081111
  3. ELPLAT [Concomitant]
     Indication: RECTAL CANCER
     Dosage: UNK
     Dates: start: 20080820, end: 20081105
  4. IRINOTECAN HCL [Concomitant]
     Indication: RECTAL CANCER
     Dosage: UNK
     Dates: start: 20080930, end: 20081105
  5. FLUOROURACIL [Concomitant]
     Indication: RECTAL CANCER
     Dosage: UNK
     Dates: start: 20080820, end: 20081107
  6. CALCIUM LEVOFOLINATE [Concomitant]
     Indication: RECTAL CANCER
     Dosage: UNK
     Dates: start: 20080820, end: 20081105
  7. MUCOSTA [Concomitant]
     Indication: DRUG USE FOR UNKNOWN INDICATION
     Dosage: UNK
     Dates: start: 20080801, end: 20081111

REACTIONS (2)
  - DUODENAL ULCER PERFORATION [None]
  - PERITONITIS [None]
